FAERS Safety Report 8098344-8 (Version None)
Quarter: 2012Q1

REPORT INFORMATION
  Report Type: 
  Country: None (occurrence: None)
  Receive Date: 20120131
  Receipt Date: 20120120
  Transmission Date: 20120608
  Serious: Yes (Other)
  Sender: FDA-Public Use
  Company Number: JP-B.I. PHARMACEUTICALS,INC./RIDGEFIELD-2012-BP-01742YA

PATIENT
  Age: 8 Decade
  Sex: Male

DRUGS (5)
  1. TAMSULOSIN HCL [Suspect]
     Route: 048
     Dates: start: 20120101
  2. MIRABEGRON [Suspect]
     Indication: POLLAKIURIA
     Route: 048
     Dates: start: 20120101
  3. VESICARE [Suspect]
     Route: 048
     Dates: start: 20120101
  4. URIEF [Concomitant]
     Dates: start: 20120101
  5. TAMSULOSIN HCL [Suspect]
     Indication: BENIGN PROSTATIC HYPERPLASIA
     Route: 048
     Dates: start: 20110101

REACTIONS (2)
  - URINARY RETENTION [None]
  - DRUG INEFFECTIVE [None]
